FAERS Safety Report 6173750-7 (Version None)
Quarter: 2009Q2

REPORT INFORMATION
  Report Type: 
  Country: None (occurrence: None)
  Receive Date: 20090430
  Receipt Date: 20090427
  Transmission Date: 20091009
  Serious: Yes (Hospitalization, Other)
  Sender: FDA-Public Use
  Company Number: PHHY2008JP31822

PATIENT
  Age: 80 Year
  Sex: Female

DRUGS (5)
  1. NEORAL [Suspect]
     Indication: APLASTIC ANAEMIA
  2. ANTI-THYMOCYTE GLOBULIN NOS [Suspect]
     Indication: APLASTIC ANAEMIA
  3. FLUCONAZOLE [Concomitant]
  4. SULFAMETHOXAZOLE AND TRIMETHOPRIM [Concomitant]
  5. LEVOFLOXACIN [Concomitant]

REACTIONS (11)
  - ABDOMINAL PAIN [None]
  - BACILLUS INFECTION [None]
  - CELLULITIS [None]
  - ENTEROCOCCAL INFECTION [None]
  - GASTRITIS BACTERIAL [None]
  - GASTROINTESTINAL MUCOSAL NECROSIS [None]
  - GASTROINTESTINAL OEDEMA [None]
  - MELAENA [None]
  - PANCYTOPENIA [None]
  - RENAL DISORDER [None]
  - VOMITING [None]
